FAERS Safety Report 6965243-1 (Version None)
Quarter: 2010Q3

REPORT INFORMATION
  Report Type: 
  Country: None (occurrence: None)
  Receive Date: 20100903
  Receipt Date: 20100830
  Transmission Date: 20110219
  Serious: Yes (Hospitalization)
  Sender: FDA-Public Use
  Company Number: PHHO2008NL01742

PATIENT
  Sex: Male
  Weight: 100 kg

DRUGS (4)
  1. CERTICAN [Suspect]
     Indication: LIVER TRANSPLANT
     Dosage: 2 MG, BID
     Route: 048
     Dates: start: 20071204, end: 20080107
  2. AUGMENTIN '125' [Suspect]
     Route: 048
     Dates: start: 20071214, end: 20071221
  3. NEORAL [Concomitant]
     Indication: LIVER TRANSPLANT
     Dosage: 100 MG, BID
     Route: 048
     Dates: start: 20071024, end: 20080114
  4. TACROLIMUS [Concomitant]
     Indication: LIVER TRANSPLANT

REACTIONS (3)
  - ERYTHEMA [None]
  - PRURITUS [None]
  - TOXIC SKIN ERUPTION [None]
